FAERS Safety Report 5157348-5 (Version None)
Quarter: 2006Q4

REPORT INFORMATION
  Report Type: 
  Country: None (occurrence: None)
  Receive Date: 20061127
  Receipt Date: 20050620
  Transmission Date: 20070319
  Serious: Yes (Hospitalization)
  Sender: FDA-Public Use
  Company Number: US-ROCHE-408540

PATIENT
  Age: 57 Year
  Sex: Male
  Weight: 79.4 kg

DRUGS (4)
  1. PEG-INTERFERON ALFA 2A (RO 25-8310) [Suspect]
     Route: 058
     Dates: start: 20041122, end: 20050304
  2. PEG-INTERFERON ALFA 2A (RO 25-8310) [Suspect]
     Route: 058
     Dates: end: 20050505
  3. RIBAVIRIN [Suspect]
     Route: 048
     Dates: start: 20041122, end: 20050511
  4. LEXAPRO [Concomitant]
     Indication: DEPRESSION
     Dates: start: 20050118

REACTIONS (4)
  - BILE DUCT STONE [None]
  - CHOLELITHIASIS [None]
  - JAUNDICE [None]
  - MALIGNANT NEOPLASM OF AMPULLA OF VATER [None]
